FAERS Safety Report 26000099 (Version 1)
Quarter: 2025Q4

REPORT INFORMATION
  Report Type: Spontaneous
  Country: US (occurrence: US)
  Receive Date: 20251105
  Receipt Date: 20251105
  Transmission Date: 20260119
  Serious: No
  Sender: CURRAX PHARMACEUTICALS
  Company Number: US-CURRAX PHARMACEUTICALS LLC-US-2025CUR000751

PATIENT
  Sex: Female

DRUGS (2)
  1. CONTRAVE [Suspect]
     Active Substance: BUPROPION HYDROCHLORIDE\NALTREXONE HYDROCHLORIDE
     Indication: Weight control
     Dosage: STRENGTH: 8/90 MG, ONE DOSE THIS MORNING
     Route: 065
     Dates: start: 20250328, end: 20250328
  2. HYDROCODONE [Suspect]
     Active Substance: HYDROCODONE
     Indication: Back pain
     Dosage: UNK
     Route: 065

REACTIONS (9)
  - Feeling abnormal [Unknown]
  - Dyspnoea [Unknown]
  - Palpitations [Unknown]
  - Nausea [Unknown]
  - Diarrhoea [Unknown]
  - Erythema [Unknown]
  - Fatigue [Unknown]
  - Somnolence [Unknown]
  - Contraindicated product administered [Unknown]

NARRATIVE: CASE EVENT DATE: 20250328
